FAERS Safety Report 17867568 (Version 1)
Quarter: 2020Q2

REPORT INFORMATION
  Report Type: Spontaneous
  Country: FR (occurrence: FR)
  Receive Date: 20200605
  Receipt Date: 20200605
  Transmission Date: 20200714
  Serious: Yes (Other)
  Sender: FDA-Public Use
  Company Number: FR-BAUSCH-BL-2020-015620

PATIENT
  Age: 3 Day
  Sex: Female

DRUGS (3)
  1. SODIUM PHENYLBUTYRATE. [Suspect]
     Active Substance: SODIUM PHENYLBUTYRATE
     Indication: PRODUCT USED FOR UNKNOWN INDICATION
     Route: 065
  2. AMMONUL [Suspect]
     Active Substance: SODIUM BENZOATE\SODIUM PHENYLACETATE
     Indication: ARGININOSUCCINATE SYNTHETASE DEFICIENCY
     Route: 065
     Dates: start: 20200409
  3. ARGININE [Suspect]
     Active Substance: ARGININE
     Indication: ARGININOSUCCINATE SYNTHETASE DEFICIENCY
     Route: 065
     Dates: start: 20200409

REACTIONS (3)
  - Overdose [Unknown]
  - Haemodialysis [Not Recovered/Not Resolved]
  - Seizure [Unknown]

NARRATIVE: CASE EVENT DATE: 20200409
